FAERS Safety Report 12720048 (Version 1)
Quarter: 2016Q3

REPORT INFORMATION
  Report Type: Spontaneous
  Country: US (occurrence: US)
  Receive Date: 20160907
  Receipt Date: 20160907
  Transmission Date: 20161109
  Serious: No
  Sender: FDA-Public Use
  Company Number: US-009507513-1608USA007565

PATIENT
  Sex: Female
  Weight: 63.5 kg

DRUGS (4)
  1. PRINIVIL [Suspect]
     Active Substance: LISINOPRIL
     Indication: BLOOD PRESSURE ABNORMAL
     Dosage: UNK
     Route: 048
     Dates: end: 201607
  2. PREDNISONE. [Concomitant]
     Active Substance: PREDNISONE
     Indication: ARTHROPATHY
     Dosage: UNK
     Route: 048
  3. NORVASK [Suspect]
     Active Substance: AMLODIPINE BESYLATE
     Dosage: 10 MG, QD
     Route: 048
     Dates: start: 201607, end: 20160805
  4. NORVASK [Suspect]
     Active Substance: AMLODIPINE BESYLATE
     Indication: BLOOD PRESSURE ABNORMAL
     Dosage: 5 MG, QD
     Route: 048
     Dates: start: 2016, end: 201607

REACTIONS (7)
  - Renal disorder [Not Recovered/Not Resolved]
  - Peripheral swelling [Unknown]
  - Burning sensation [Not Recovered/Not Resolved]
  - Joint swelling [Unknown]
  - Rash erythematous [Unknown]
  - Oedema [Not Recovered/Not Resolved]
  - Erythema [Recovering/Resolving]

NARRATIVE: CASE EVENT DATE: 2016
